FAERS Safety Report 6126174-2 (Version None)
Quarter: 2009Q1

REPORT INFORMATION
  Report Type: 
  Country: None (occurrence: None)
  Receive Date: 20090320
  Receipt Date: 20090313
  Transmission Date: 20090719
  Serious: Yes (Other)
  Sender: FDA-Public Use
  Company Number: B0558455A

PATIENT
  Age: 13 Year
  Sex: Female
  Weight: 40 kg

DRUGS (2)
  1. RELENZA [Suspect]
     Indication: INFLUENZA
     Dosage: 10MG TWICE PER DAY
     Route: 055
     Dates: start: 20090204, end: 20090204
  2. CALONAL [Concomitant]

REACTIONS (7)
  - ABNORMAL BEHAVIOUR [None]
  - DELIRIUM [None]
  - DEPRESSED LEVEL OF CONSCIOUSNESS [None]
  - HALLUCINATION [None]
  - INCOHERENT [None]
  - PORIOMANIA [None]
  - RESTLESSNESS [None]
